FAERS Safety Report 21210273 (Version 4)
Quarter: 2022Q4

REPORT INFORMATION
  Report Type: Spontaneous
  Country: JP (occurrence: JP)
  Receive Date: 20220814
  Receipt Date: 20221107
  Transmission Date: 20230113
  Serious: Yes (Other)
  Sender: FDA-Public Use
  Company Number: JP-NEUROCRINE BIOSCIENCES INC.-2022NBI05361

PATIENT

DRUGS (9)
  1. VALBENAZINE [Suspect]
     Active Substance: VALBENAZINE
     Indication: Tardive dyskinesia
     Dosage: 40 MILLIGRAM, QD
     Route: 048
     Dates: start: 20220705, end: 20220721
  2. VALBENAZINE [Suspect]
     Active Substance: VALBENAZINE
     Dosage: UNK
     Route: 048
     Dates: start: 20220802, end: 20220805
  3. VALBENAZINE [Suspect]
     Active Substance: VALBENAZINE
     Dosage: UNK
     Route: 048
     Dates: start: 20220905
  4. LEVOMEPROMAZINE MALEATE [Suspect]
     Active Substance: LEVOMEPROMAZINE MALEATE
     Indication: Product used for unknown indication
     Dosage: 75 MILLIGRAM, QD
     Route: 048
  5. LEVOMEPROMAZINE MALEATE [Suspect]
     Active Substance: LEVOMEPROMAZINE MALEATE
     Dosage: 30 MILLIGRAM, QD
     Route: 048
     Dates: end: 20220812
  6. MIDODRINE HYDROCHLORIDE [Suspect]
     Active Substance: MIDODRINE HYDROCHLORIDE
     Dosage: UNKNOWN
     Route: 065
  7. TIAPRIDE [Concomitant]
     Active Substance: TIAPRIDE
     Dosage: UNKNOWN
     Route: 065
     Dates: end: 20220812
  8. HALOPERIDOL [Concomitant]
     Active Substance: HALOPERIDOL
     Dosage: UNKNOWN
     Route: 065
     Dates: end: 20220812
  9. ARTANE [Concomitant]
     Active Substance: TRIHEXYPHENIDYL HYDROCHLORIDE
     Dosage: UNKNOWN
     Route: 065
     Dates: start: 20220812

REACTIONS (3)
  - Tardive dyskinesia [Unknown]
  - Electrocardiogram ST segment elevation [Recovered/Resolved]
  - Electrocardiogram QT prolonged [Recovered/Resolved]

NARRATIVE: CASE EVENT DATE: 20220719
